FAERS Safety Report 19928029 (Version 1)
Quarter: 2021Q4

REPORT INFORMATION
  Report Type: Spontaneous
  Country: US (occurrence: US)
  Receive Date: 20211006
  Receipt Date: 20211006
  Transmission Date: 20220303
  Serious: Yes (Other)
  Sender: FDA-Public Use
  Company Number: None

PATIENT
  Age: 8 Year
  Sex: Male
  Weight: 33 kg

DRUGS (2)
  1. ONCASPAR [Suspect]
     Active Substance: PEGASPARGASE
     Indication: B-cell lymphoma
     Dosage: ?          OTHER FREQUENCY:PER COG PROTOCOL;
     Route: 041
     Dates: start: 20210817
  2. ONCASPAR [Suspect]
     Active Substance: PEGASPARGASE
     Indication: Acute lymphocytic leukaemia

REACTIONS (7)
  - Nausea [None]
  - Vomiting [None]
  - Infusion related reaction [None]
  - Urticaria [None]
  - Pruritus [None]
  - Heart rate increased [None]
  - Blood pressure decreased [None]

NARRATIVE: CASE EVENT DATE: 20211005
